FAERS Safety Report 8620891-8 (Version None)
Quarter: 2012Q3

REPORT INFORMATION
  Report Type: 
  Country: None (occurrence: None)
  Receive Date: 20120824
  Receipt Date: 20120817
  Transmission Date: 20120928
  Serious: Yes (Other)
  Sender: FDA-Public Use
  Company Number: CHPA2012US018413

PATIENT
  Age: 67 Year
  Sex: Female

DRUGS (1)
  1. NICOTINE [Suspect]
     Indication: SMOKING CESSATION THERAPY
     Dosage: 1 DF, QD (1 PATCH)
     Route: 062
     Dates: start: 20110801, end: 20110801

REACTIONS (2)
  - CEREBROVASCULAR ACCIDENT [None]
  - INAPPROPRIATE SCHEDULE OF DRUG ADMINISTRATION [None]
